FAERS Safety Report 11239458 (Version 1)
Quarter: 2015Q3

REPORT INFORMATION
  Report Type: Report from Study
  Country: IT (occurrence: None)
  Receive Date: 20150701
  Receipt Date: 20150701
  Transmission Date: 20151125
  Serious: Yes (Hospitalization, Other)
  Sender: FDA-Public Use
  Company Number: IT2015GSK085287

PATIENT
  Age: 42 Year
  Sex: Male
  Weight: 82 kg

DRUGS (4)
  1. MARAVIROC (MARAVIROC) UNKNOWN [Suspect]
     Active Substance: MARAVIROC
     Dates: start: 20131121
  2. RITONAVIR (RITONAVIR) [Concomitant]
     Active Substance: RITONAVIR
  3. DARUNAVIR (DARUNAVIR) [Concomitant]
     Active Substance: DARUNAVIR
  4. TIVICAY (DOLUTEGRAVIR SODIUM) [Concomitant]

REACTIONS (1)
  - Acute myocardial infarction [None]

NARRATIVE: CASE EVENT DATE: 20150611
